FAERS Safety Report 8233853-X (Version None)
Quarter: 2012Q1

REPORT INFORMATION
  Report Type: 
  Country: None (occurrence: None)
  Receive Date: 20120326
  Receipt Date: 20120314
  Transmission Date: 20120608
  Serious: Yes (Other)
  Sender: FDA-Public Use
  Company Number: US-BAYER-2011-101133

PATIENT
  Age: 26 Year
  Sex: Female
  Weight: 66 kg

DRUGS (5)
  1. PRENATAL [Concomitant]
     Dosage: UNK
     Dates: start: 20080704
  2. CEFUROXIME AXETIL [Concomitant]
     Dosage: 250 MG, UNK
     Dates: start: 20080804
  3. PROLEX DM [DEXTROMETHORPHAN HYDROBROMIDE,GUAIFENESIN] [Concomitant]
     Dosage: UNK
     Dates: start: 20080804
  4. YASMIN [Suspect]
     Dosage: UNK
     Dates: start: 20040101, end: 20070101
  5. YAZ [Suspect]
     Dosage: UNK
     Dates: start: 20040101, end: 20070101

REACTIONS (7)
  - GENERAL PHYSICAL HEALTH DETERIORATION [None]
  - PAIN [None]
  - CHOLELITHIASIS [None]
  - CHOLECYSTITIS CHRONIC [None]
  - ANXIETY [None]
  - EMOTIONAL DISTRESS [None]
  - ANHEDONIA [None]
